FAERS Safety Report 5202513-1 (Version None)
Quarter: 2006Q4

REPORT INFORMATION
  Report Type: 
  Country: None (occurrence: None)
  Receive Date: 20061017
  Receipt Date: 20051114
  Transmission Date: 20070319
  Serious: Yes (Hospitalization)
  Sender: FDA-Public Use
  Company Number: PHEH2005US12499

PATIENT
  Age: 82 Year
  Sex: Female

DRUGS (1)
  1. MIACALCIN [Suspect]
     Indication: OSTEOPOROSIS
     Dosage: 200 IU, QD, INTRANASAL
     Route: 045
     Dates: start: 19950101

REACTIONS (3)
  - BONE DISORDER [None]
  - PNEUMONIA [None]
  - THROMBOSIS [None]
